FAERS Safety Report 7641075-6 (Version None)
Quarter: 2011Q3

REPORT INFORMATION
  Report Type: 
  Country: None (occurrence: None)
  Receive Date: 20110728
  Receipt Date: 20110726
  Transmission Date: 20111222
  Serious: Yes (Other)
  Sender: FDA-Public Use
  Company Number: GB-BRISTOL-MYERS SQUIBB COMPANY-15928047

PATIENT
  Age: 35 Year
  Sex: Female

DRUGS (23)
  1. GEMTUZUMAB OZOGAMICIN [Suspect]
     Indication: ACUTE MYELOID LEUKAEMIA
     Dosage: 6MG UNIT DOSE
     Dates: start: 20101212, end: 20101221
  2. OXYTETRACYCLINE [Concomitant]
     Dates: start: 20101220, end: 20101229
  3. SANDO-K [Concomitant]
     Dates: start: 20101229, end: 20110103
  4. ETOPOSIDE [Suspect]
     Indication: ACUTE MYELOID LEUKAEMIA
     Dates: start: 20101212, end: 20101221
  5. DAUNORUBICIN HCL [Suspect]
     Indication: MYELODYSPLASTIC SYNDROME
     Dates: start: 20101212, end: 20101221
  6. CEFTAZIDIME [Concomitant]
     Dates: start: 20101229
  7. TRANEXAMIC ACID [Concomitant]
  8. SANDOCAL [Concomitant]
     Dates: start: 20101227, end: 20101227
  9. ETOPOSIDE [Suspect]
     Indication: MYELODYSPLASTIC SYNDROME
     Dates: start: 20101212, end: 20101221
  10. GEMTUZUMAB OZOGAMICIN [Suspect]
     Indication: MYELODYSPLASTIC SYNDROME
     Dosage: 6MG UNIT DOSE
     Dates: start: 20101212, end: 20101221
  11. CYTARABINE [Suspect]
     Indication: ACUTE MYELOID LEUKAEMIA
     Dates: start: 20101212, end: 20101221
  12. ITRACONAZOLE [Concomitant]
     Dates: start: 20101212
  13. DIPROBASE [Concomitant]
     Dates: start: 20101227, end: 20101231
  14. DAUNORUBICIN HCL [Suspect]
     Indication: ACUTE MYELOID LEUKAEMIA
     Dates: start: 20101212, end: 20101221
  15. METRONIDAZOLE [Concomitant]
     Dates: start: 20101222
  16. DIFFLAM [Concomitant]
     Dates: start: 20101212
  17. NORETHINDRONE [Concomitant]
     Dates: start: 20101212
  18. ACYCLOVIR [Concomitant]
     Dates: start: 20101212
  19. CHLORHEXIDINE GLUCONATE [Concomitant]
     Dates: start: 20101212
  20. CYTARABINE [Suspect]
     Indication: MYELODYSPLASTIC SYNDROME
     Dates: start: 20101212, end: 20101221
  21. MEROPENEM [Concomitant]
     Dates: start: 20101229
  22. VANCOMYCIN [Concomitant]
     Dates: start: 20101227
  23. OMEPRAZOLE [Concomitant]
     Dates: start: 20101212

REACTIONS (1)
  - BLOOD ALBUMIN DECREASED [None]
